FAERS Safety Report 7434407-5 (Version None)
Quarter: 2011Q2

REPORT INFORMATION
  Report Type: 
  Country: None (occurrence: None)
  Receive Date: 20110425
  Receipt Date: 20110411
  Transmission Date: 20111010
  Serious: Yes (Hospitalization)
  Sender: FDA-Public Use
  Company Number: PHHY2011DE17001

PATIENT
  Sex: Male
  Weight: 69.8 kg

DRUGS (4)
  1. LEPONEX [Suspect]
     Dosage: 200 MG, DAILY
     Route: 048
     Dates: start: 20100101, end: 20110101
  2. LEPONEX [Suspect]
     Dosage: 200 MG, UNK
     Route: 048
     Dates: start: 20110301
  3. PANTOPRAZOLE [Concomitant]
  4. LEPONEX [Suspect]
     Dosage: 350 MG, QD
     Route: 048

REACTIONS (7)
  - DYSPHAGIA [None]
  - WEIGHT DECREASED [None]
  - GASTRITIS [None]
  - DIAPHRAGMATIC HERNIA [None]
  - REFLUX OESOPHAGITIS [None]
  - GASTROINTESTINAL OBSTRUCTION [None]
  - DRUG INTERACTION [None]
